FAERS Safety Report 25979556 (Version 2)
Quarter: 2025Q4

REPORT INFORMATION
  Report Type: Spontaneous
  Country: US (occurrence: US)
  Receive Date: 20251030
  Receipt Date: 20251229
  Transmission Date: 20260118
  Serious: No
  Sender: ROCHE
  Company Number: US-ROCHE-10000417231

PATIENT
  Sex: Female

DRUGS (3)
  1. XOLAIR PFS [Suspect]
     Active Substance: OMALIZUMAB
     Indication: Asthma
     Dosage: 150 MG/ML
     Route: 058
     Dates: start: 202001
  2. XOLAIR PFS [Suspect]
     Active Substance: OMALIZUMAB
  3. TAKHZYRO PFS [Concomitant]

REACTIONS (2)
  - Swelling [Unknown]
  - Headache [Unknown]
